FAERS Safety Report 23271231 (Version 1)
Quarter: 2023Q4

REPORT INFORMATION
  Report Type: Spontaneous
  Country: US (occurrence: US)
  Receive Date: 20231207
  Receipt Date: 20231207
  Transmission Date: 20240110
  Serious: Yes (Other)
  Sender: FDA-Public Use
  Company Number: US-MYLANLABS-2023M1129094

PATIENT
  Age: 71 Year
  Sex: Male

DRUGS (6)
  1. MYCOPHENOLATE MOFETIL [Suspect]
     Active Substance: MYCOPHENOLATE MOFETIL
     Indication: Immunosuppressant drug therapy
     Dosage: 250 MILLIGRAM, BID
     Route: 065
  2. PREDNISONE [Suspect]
     Active Substance: PREDNISONE
     Indication: Immunosuppressant drug therapy
     Dosage: 5 MILLIGRAM, QD
     Route: 065
  3. TACROLIMUS [Suspect]
     Active Substance: TACROLIMUS
     Indication: Immunosuppressant drug therapy
     Dosage: UNK; DOSE: 2MG ONCE IN THE MORNING AND 1MG AT NIGHT
     Route: 065
  4. SIROLIMUS [Concomitant]
     Active Substance: SIROLIMUS
     Indication: Immunosuppressant drug therapy
     Dosage: 2 MILLIGRAM, QD
     Route: 065
  5. TALIMOGENE LAHERPAREPVEC [Concomitant]
     Active Substance: TALIMOGENE LAHERPAREPVEC
     Indication: Squamous cell carcinoma of skin
     Dosage: UNK; INITIAL DOSE: 10*6PFU/ML
     Route: 026
  6. TALIMOGENE LAHERPAREPVEC [Concomitant]
     Active Substance: TALIMOGENE LAHERPAREPVEC
     Indication: Disease recurrence
     Dosage: UNK; LATER DOSE: 10*8 PFU/ML EVERY TWO WEEKS, Q2W
     Route: 026

REACTIONS (2)
  - Squamous cell carcinoma of skin [Recovered/Resolved]
  - Disease recurrence [Recovered/Resolved]
